FAERS Safety Report 6178710-8 (Version None)
Quarter: 2009Q2

REPORT INFORMATION
  Report Type: 
  Country: None (occurrence: None)
  Receive Date: 20090504
  Receipt Date: 20081024
  Transmission Date: 20091009
  Serious: No
  Sender: FDA-Public Use
  Company Number: US-ALEXION-A200800311

PATIENT

DRUGS (4)
  1. SOLIRIS [Suspect]
     Dosage: INDUCTION PHASE
     Route: 042
  2. SOLIRIS [Suspect]
     Dosage: 900 MG, Q2W
     Route: 042
  3. SOLIRIS [Suspect]
     Dosage: 300 MG, QW
     Route: 042
  4. SOLIRIS [Suspect]
     Dosage: 600 MG ONE WEEK, 300 MG NEXT WEEK
     Route: 042

REACTIONS (1)
  - HAEMOLYSIS [None]
